FAERS Safety Report 25203485 (Version 1)
Quarter: 2025Q2

REPORT INFORMATION
  Report Type: Spontaneous
  Country: US (occurrence: US)
  Receive Date: 20250416
  Receipt Date: 20250416
  Transmission Date: 20250717
  Serious: Yes (Other)
  Sender: Unknown Manufacturer
  Company Number: US-MELINTA THERAPEUTICS, LLC-US-MLNT-25-00080

PATIENT

DRUGS (2)
  1. METOPROLOL SUCCINATE [Suspect]
     Active Substance: METOPROLOL SUCCINATE
     Indication: Product used for unknown indication
  2. LYNPARZA [Suspect]
     Active Substance: OLAPARIB
     Indication: Ovarian cancer
     Route: 048
     Dates: start: 20250219

REACTIONS (10)
  - Ovarian cancer [Unknown]
  - Migraine [Unknown]
  - Food allergy [Unknown]
  - Weight decreased [Recovering/Resolving]
  - Dairy intolerance [Recovering/Resolving]
  - Haematoma [Recovering/Resolving]
  - Abdominal discomfort [Recovering/Resolving]
  - Blood pressure decreased [Recovering/Resolving]
  - Headache [Recovering/Resolving]
  - Nausea [Recovering/Resolving]
